FAERS Safety Report 4456361-0 (Version None)
Quarter: 2004Q3

REPORT INFORMATION
  Report Type: 
  Country: None (occurrence: None)
  Receive Date: 20040917
  Receipt Date: 20040909
  Transmission Date: 20050211
  Serious: Yes (Hospitalization)
  Sender: FDA-Public Use
  Company Number: 2004233154US

PATIENT
  Age: 42 Year
  Sex: Female

DRUGS (2)
  1. AZULFIDINE [Suspect]
     Indication: COLITIS ULCERATIVE
     Dates: end: 20040901
  2. PREDNISONE [Concomitant]

REACTIONS (8)
  - ANOREXIA [None]
  - DEHYDRATION [None]
  - GASTROINTESTINAL PAIN [None]
  - HEADACHE [None]
  - NAUSEA [None]
  - PHARYNGOLARYNGEAL PAIN [None]
  - PYREXIA [None]
  - RASH [None]
